FAERS Safety Report 5965559-1 (Version None)
Quarter: 2008Q4

REPORT INFORMATION
  Report Type: 
  Country: None (occurrence: None)
  Receive Date: 20081125
  Receipt Date: 20080212
  Transmission Date: 20090506
  Serious: Yes (Other)
  Sender: FDA-Public Use
  Company Number: US-AMGEN-KDL260179

PATIENT
  Sex: Male
  Weight: 81.7 kg

DRUGS (12)
  1. ENBREL [Suspect]
     Indication: PSORIASIS
     Route: 058
     Dates: start: 20040604
  2. COUMADIN [Concomitant]
     Dates: start: 20071015
  3. SYNTHROID [Concomitant]
  4. DIOVAN HCT [Concomitant]
  5. DIOVAN [Concomitant]
  6. AMIODARONE HCL [Concomitant]
  7. ALBUTEROL [Concomitant]
  8. IBUPROFEN TABLETS [Concomitant]
  9. CLOBETASOL PROPIONATE [Concomitant]
  10. SINGULAIR [Concomitant]
  11. DOVONEX [Concomitant]
  12. PROTOPIC [Concomitant]

REACTIONS (2)
  - PANCYTOPENIA [None]
  - PSORIASIS [None]
